FAERS Safety Report 7416926-0 (Version None)
Quarter: 2011Q2

REPORT INFORMATION
  Report Type: 
  Country: None (occurrence: None)
  Receive Date: 20110407
  Receipt Date: 20110323
  Transmission Date: 20111010
  Serious: Yes (Hospitalization)
  Sender: FDA-Public Use
  Company Number: PHHY2011CH24539

PATIENT
  Age: 33 Year
  Sex: Female

DRUGS (13)
  1. ACETAMINOPHEN [Concomitant]
  2. NORVASC [Concomitant]
  3. TRAMAL (TRAMADOL HYDROCHLORIDE) [Concomitant]
  4. NEXIUM (ESOMERPAZOLE MAGNESIUM) [Concomitant]
  5. VENTOLIN [Concomitant]
  6. LISINOPRIL [Concomitant]
  7. LEVOTHYROXINE SODIUM [Concomitant]
  8. MESTINON [Concomitant]
  9. ACETAMINOPHEN [Concomitant]
  10. GYNO-TARDYFERON (FERROUS SULFATE, FOLIC ACID) [Concomitant]
  11. FORMOTEROL W/BUDESONIDE (BUDESONIDE, FORMOTEROL) [Concomitant]
  12. SIRDALUD (TIZANIDINE HYDROCHLORIDE) UNKNOWN [Suspect]
     Dosage: 2 MG, TID ORAL
     Route: 048
     Dates: end: 20101103
  13. ASPIRIN [Concomitant]

REACTIONS (3)
  - UMBILICAL HERNIA [None]
  - ABDOMINAL PAIN [None]
  - HEPATIC ENZYME INCREASED [None]
